FAERS Safety Report 23733141 (Version 1)
Quarter: 2024Q2

REPORT INFORMATION
  Report Type: Spontaneous
  Country: CN (occurrence: CN)
  Receive Date: 20240411
  Receipt Date: 20240411
  Transmission Date: 20240715
  Serious: Yes (Hospitalization)
  Sender: FDA-Public Use
  Company Number: CN-Merck Healthcare KGaA-2024018166

PATIENT
  Age: 60 Year
  Sex: Male
  Weight: 66 kg

DRUGS (3)
  1. ERBITUX [Suspect]
     Active Substance: CETUXIMAB
     Indication: Rectal cancer metastatic
     Dosage: 800 MG, OTHER
     Route: 041
     Dates: start: 20231116, end: 20231116
  2. ERBITUX [Suspect]
     Active Substance: CETUXIMAB
     Dosage: 600 MG, OTHER
     Route: 041
     Dates: start: 20231228
  3. CAPECITABINE [Suspect]
     Active Substance: CAPECITABINE
     Indication: Rectal cancer metastatic
     Dosage: 1500 MG, OTHER
     Route: 048
     Dates: start: 20231116

REACTIONS (2)
  - Skin lesion [Recovering/Resolving]
  - Drug-induced liver injury [Recovering/Resolving]

NARRATIVE: CASE EVENT DATE: 20240327
